FAERS Safety Report 15666170 (Version 3)
Quarter: 2019Q1

REPORT INFORMATION
  Report Type: Report from Study
  Country: MX (occurrence: MX)
  Receive Date: 20181128
  Receipt Date: 20190301
  Transmission Date: 20190417
  Serious: Yes (Hospitalization)
  Sender: FDA-Public Use
  Company Number: PHHY2018MX154663

PATIENT
  Age: 5 Year
  Sex: Male
  Weight: 32 kg

DRUGS (5)
  1. RITALIN LA [Suspect]
     Active Substance: METHYLPHENIDATE HYDROCHLORIDE
     Indication: ANXIETY
     Dosage: 1 DF, (20 MG) UNK
     Route: 048
     Dates: start: 20190125
  2. RITALIN LA [Suspect]
     Active Substance: METHYLPHENIDATE HYDROCHLORIDE
     Indication: ATTENTION DEFICIT/HYPERACTIVITY DISORDER
  3. RITALIN LA [Suspect]
     Active Substance: METHYLPHENIDATE HYDROCHLORIDE
     Indication: AGGRESSION
     Dosage: 1 DF, QD (APPROXIMATELY A MONTH AGO)
     Route: 048
     Dates: start: 201809, end: 20181110
  4. METHYLPHENIDATE. [Suspect]
     Active Substance: METHYLPHENIDATE
     Indication: ATTENTION DEFICIT/HYPERACTIVITY DISORDER
     Dosage: 2 DF, QD
     Route: 048
     Dates: start: 201811, end: 201811
  5. RITALINE [Suspect]
     Active Substance: METHYLPHENIDATE HYDROCHLORIDE
     Indication: PRODUCT USED FOR UNKNOWN INDICATION
     Dosage: 10 MG, UNK
     Route: 065

REACTIONS (6)
  - Weight increased [Recovered/Resolved]
  - Depression [Recovered/Resolved]
  - Restlessness [Unknown]
  - Disturbance in attention [Recovered/Resolved]
  - Hallucination, auditory [Recovered/Resolved]
  - Aggression [Unknown]

NARRATIVE: CASE EVENT DATE: 20181022
